FAERS Safety Report 9153442 (Version 1)
Quarter: 2013Q1

REPORT INFORMATION
  Report Type: Spontaneous
  Country: US (occurrence: None)
  Receive Date: 20130306
  Receipt Date: 20130306
  Transmission Date: 20140127
  Serious: Yes (Life-Threatening, Hospitalization)
  Sender: FDA-Public Use
  Company Number: None

PATIENT
  Age: 6 Year
  Sex: Male
  Weight: 22 kg

DRUGS (5)
  1. LAMICTAL [Suspect]
     Indication: CONVULSION
     Route: 048
     Dates: start: 20130201, end: 20130215
  2. CLONIDINE [Concomitant]
  3. ZONISAMIDE [Concomitant]
  4. DIVALPROEX [Concomitant]
  5. CLONAZEPAM [Concomitant]

REACTIONS (7)
  - Rash generalised [None]
  - Feeling hot [None]
  - Discomfort [None]
  - Stevens-Johnson syndrome [None]
  - Toxic epidermal necrolysis [None]
  - Lip erosion [None]
  - Blister [None]
